FAERS Safety Report 9607727 (Version 1)
Quarter: 2013Q4

REPORT INFORMATION
  Report Type: Spontaneous
  Country: BR (occurrence: BR)
  Receive Date: 20131009
  Receipt Date: 20131009
  Transmission Date: 20140711
  Serious: Yes (Hospitalization, Other)
  Sender: FDA-Public Use
  Company Number: BR-009507513-1310BRA001941

PATIENT
  Age: 82 Year
  Sex: Male
  Weight: 70 kg

DRUGS (3)
  1. ZETSIM [Suspect]
     Indication: BLOOD CHOLESTEROL ABNORMAL
     Dosage: UNK, QOD
     Route: 048
     Dates: start: 2011
  2. AMLODIPINE BESYLATE [Concomitant]
     Indication: HYPERTENSION
     Dosage: 5 MG, QD
  3. GLIFAGE [Concomitant]
     Indication: BLOOD GLUCOSE ABNORMAL
     Dosage: 500 MG, QD

REACTIONS (8)
  - Hip arthroplasty [Recovered/Resolved]
  - Nervousness [Recovered/Resolved]
  - Osteoarthritis [Recovering/Resolving]
  - Hypothyroidism [Recovering/Resolving]
  - Increased upper airway secretion [Recovering/Resolving]
  - Wheezing [Recovering/Resolving]
  - Arthritis [Recovering/Resolving]
  - Drug administration error [Unknown]
